FAERS Safety Report 22320000 (Version 1)
Quarter: 2023Q2

REPORT INFORMATION
  Report Type: Spontaneous
  Country: US (occurrence: None)
  Receive Date: 20230515
  Receipt Date: 20230515
  Transmission Date: 20230722
  Serious: No
  Sender: FDA-Public Use
  Company Number: 2023A111724

PATIENT

DRUGS (2)
  1. PRILOSEC [Suspect]
     Active Substance: OMEPRAZOLE MAGNESIUM
     Dosage: 1 TABLET, MORNING AT 4
     Route: 048
  2. THYROID PILL [Concomitant]
     Indication: Thyroid disorder
     Dosage: UNK

REACTIONS (1)
  - Gastric disorder [Unknown]
